FAERS Safety Report 11757399 (Version 1)
Quarter: 2015Q4

REPORT INFORMATION
  Report Type: Spontaneous
  Country: US (occurrence: US)
  Receive Date: 20151120
  Receipt Date: 20151120
  Transmission Date: 20160304
  Serious: Yes (Life-Threatening, Hospitalization)
  Sender: FDA-Public Use
  Company Number: US-JNJFOC-20151111641

PATIENT
  Age: 17 Year

DRUGS (2)
  1. PARACETAMOL [Suspect]
     Active Substance: ACETAMINOPHEN
     Route: 065
  2. PARACETAMOL [Suspect]
     Active Substance: ACETAMINOPHEN
     Indication: PRODUCT USED FOR UNKNOWN INDICATION
     Route: 065

REACTIONS (6)
  - Overdose [Recovered/Resolved]
  - Medical device complication [None]
  - Haemothorax [Recovered/Resolved]
  - Multi-organ failure [Recovered/Resolved]
  - Haemodynamic instability [Recovered/Resolved]
  - Vena cava injury [None]
